FAERS Safety Report 5325850-9 (Version None)
Quarter: 2007Q2

REPORT INFORMATION
  Report Type: 
  Country: None (occurrence: None)
  Receive Date: 20070510
  Receipt Date: 20070426
  Transmission Date: 20071010
  Serious: Yes (Hospitalization)
  Sender: FDA-Public Use
  Company Number: 2007JP001870

PATIENT
  Age: 81 Year
  Sex: Female
  Weight: 43.6 kg

DRUGS (7)
  1. PROGRAF [Suspect]
     Indication: MYASTHENIA GRAVIS
     Dosage: 3 MG, UID/QD; ORAL
     Route: 048
     Dates: start: 20070312
  2. RENIVEZE (ENALAPRIL MALEATE) TABLET [Concomitant]
  3. AMLODIN (AMLODIPINE BESILATE) TABLET [Concomitant]
  4. MERISLON (BETHAHISTINE HYDROCHLORIDE) TABLET [Concomitant]
  5. ATP (ADENOSINE TRIPHOSPHATE, DISODIUM SALT) TABLET [Concomitant]
  6. FAMOTIDINE ORODISPERSABLE CR TABLET [Concomitant]
  7. BISOLVON (BROMHEXINE HYDROCHLORIDE) TABLET [Concomitant]

REACTIONS (1)
  - INTESTINAL ISCHAEMIA [None]
